FAERS Safety Report 19467105 (Version 1)
Quarter: 2021Q2

REPORT INFORMATION
  Report Type: Spontaneous
  Country: US (occurrence: US)
  Receive Date: 20210628
  Receipt Date: 20210628
  Transmission Date: 20210717
  Serious: No
  Sender: FDA-Public Use
  Company Number: US-TEVA-2021-US-1923071

PATIENT
  Age: 62 Year
  Sex: Female
  Weight: 54.4 kg

DRUGS (4)
  1. COVID?19 VACCINE NOS. [Suspect]
     Active Substance: COVID-19 VACCINE NOS
     Dates: start: 2021, end: 2021
  2. CLONAZEPAM. [Suspect]
     Active Substance: CLONAZEPAM
     Indication: CHRONIC FATIGUE SYNDROME
     Dosage: 0.125 MG (1/4 TABLET; SPLITTING IT  IN HALF)
     Route: 065
     Dates: start: 20210428, end: 202105
  3. TRAZODONE [Concomitant]
     Active Substance: TRAZODONE HYDROCHLORIDE
  4. CLONAZEPAM TEVA [Suspect]
     Active Substance: CLONAZEPAM
     Indication: CHRONIC FATIGUE SYNDROME
     Route: 065

REACTIONS (8)
  - Product substitution issue [Unknown]
  - Bruxism [Recovering/Resolving]
  - Muscle spasms [Recovered/Resolved]
  - Muscle tightness [Recovered/Resolved]
  - Pain [Recovering/Resolving]
  - Unevaluable event [Unknown]
  - Poor quality sleep [Not Recovered/Not Resolved]
  - Off label use [Unknown]

NARRATIVE: CASE EVENT DATE: 20210401
